FAERS Safety Report 4463665-4 (Version None)
Quarter: 2004Q4

REPORT INFORMATION
  Report Type: 
  Country: None (occurrence: None)
  Receive Date: 20041001
  Receipt Date: 20040921
  Transmission Date: 20050328
  Serious: Yes (Other)
  Sender: FDA-Public Use
  Company Number: BE-JNJFOC-20040903228

PATIENT
  Age: 20 Year
  Sex: Female

DRUGS (5)
  1. REMICADE [Suspect]
     Dosage: 4TH INFUSION
     Route: 042
  2. REMICADE [Suspect]
     Route: 042
  3. REMICADE [Suspect]
     Route: 042
  4. REMICADE [Suspect]
     Indication: CROHN'S DISEASE
     Route: 042
  5. IMURAN [Concomitant]

REACTIONS (4)
  - DYSPNOEA [None]
  - INFUSION RELATED REACTION [None]
  - PALPITATIONS [None]
  - RASH [None]
